FAERS Safety Report 8827969 (Version 1)
Quarter: 2012Q4

REPORT INFORMATION
  Report Type: 
  Country: US (occurrence: US)
  Receive Date: 20121005
  Receipt Date: 20121005
  Transmission Date: 20130627
  Serious: Yes (Other)
  Sender: FDA-Public Use
  Company Number: US-BAYER-2012-102980

PATIENT
  Age: 34 Year
  Sex: Female
  Weight: 92.97 kg

DRUGS (33)
  1. YASMIN [Suspect]
  2. ULTRAM [Concomitant]
     Dosage: 50 mg, UNK
     Route: 048
     Dates: start: 20110510
  3. NORTRIPTYLIN [Concomitant]
     Dosage: UNK
     Dates: start: 20110510
  4. ZOFRAN [Concomitant]
     Indication: NAUSEA
     Dosage: 4 mg, Q4HR as needed
     Route: 048
     Dates: start: 20110524
  5. ZOFRAN [Concomitant]
     Indication: VOMITING
  6. DOXORUBICIN [Concomitant]
     Dosage: UNK
     Dates: start: 20110524
  7. CYCLOPHOSPHA [Concomitant]
     Dosage: UNK
     Dates: start: 20110524
  8. EMEND [Concomitant]
     Dosage: UNK
     Dates: start: 20110524
  9. NEUPOGEN [Concomitant]
     Dosage: UNK
     Dates: start: 20110525
  10. VICODIN [Concomitant]
     Dosage: 5-500 mg
     Route: 048
     Dates: start: 20110529
  11. OMEPRAZOLE [Concomitant]
     Dosage: 20 mg/Daily 30 minutes before breakfast for 14 days
     Route: 048
     Dates: start: 201106
  12. LYRICA [Concomitant]
     Dosage: 75 mg, UNK
     Route: 048
     Dates: start: 201106
  13. MOTRIN [Concomitant]
     Dosage: 800 mg, UNK
     Route: 048
     Dates: start: 201106
  14. VITAMIN B12 NOS [Concomitant]
     Dosage: 1000 mcg/mL, UNK
     Dates: start: 201106
  15. ANTIPROPULSIVES [Concomitant]
     Dosage: 2.5-0.025 mg
     Route: 048
     Dates: start: 201106
  16. ZYRTEC [Concomitant]
     Dosage: 5-120 mg/12 hr
     Route: 048
     Dates: start: 201106
  17. ROBAXIN [Concomitant]
     Dosage: 750 mg, UNK
     Route: 048
     Dates: start: 201106
  18. MAXALT-MLT [Concomitant]
     Dosage: UNK
     Dates: start: 20110609
  19. DIPHENOXYLATE/ATROPINE [DIPHENOXYLATE HYDROCHLORIDE] [Concomitant]
  20. METHOCARBAMOL [Concomitant]
  21. IBUPROFEN [Concomitant]
  22. IMITREX [Concomitant]
  23. ZOLOFT [Concomitant]
  24. ANTIVERT [Concomitant]
  25. DELTASONE [Concomitant]
  26. ABILIFY [Concomitant]
  27. METRONIDAZOLE [Concomitant]
  28. SERTRALINE [Concomitant]
  29. GEODON [Concomitant]
  30. TRIAMCINOLONE ACETONIDE [Concomitant]
  31. TRAMADOL [Concomitant]
  32. BUPROPION [Concomitant]
  33. ONDANSETRON HYDROCHLORIDE [Concomitant]

REACTIONS (1)
  - Deep vein thrombosis [Recovered/Resolved]
